FAERS Safety Report 7056580-3 (Version None)
Quarter: 2010Q4

REPORT INFORMATION
  Report Type: 
  Country: None (occurrence: None)
  Receive Date: 20101021
  Receipt Date: 20101018
  Transmission Date: 20110411
  Serious: Yes (Hospitalization, Other)
  Sender: FDA-Public Use
  Company Number: US-MERCK-1005USA02316

PATIENT
  Age: 66 Year
  Sex: Female

DRUGS (6)
  1. FOSAMAX PLUS D [Suspect]
     Indication: OSTEOPENIA
     Route: 048
     Dates: start: 20010101, end: 20080301
  2. FOSAMAX PLUS D [Suspect]
     Indication: OSTEOPOROSIS
     Route: 048
     Dates: start: 20010101, end: 20080301
  3. FOSAMAX [Suspect]
     Indication: OSTEOPENIA
     Route: 048
     Dates: start: 20020501, end: 20080101
  4. DILTIAZEM HYDROCHLORIDE [Concomitant]
     Indication: HYPERTENSION
     Route: 048
     Dates: start: 19950101
  5. METOPROLOL [Concomitant]
     Indication: HYPERTENSION
     Route: 048
     Dates: start: 19950101
  6. ALENDRONATE SODIUM [Suspect]
     Route: 048
     Dates: start: 20080201, end: 20080101

REACTIONS (39)
  - AORTIC ARTERIOSCLEROSIS [None]
  - AORTIC VALVE DISEASE [None]
  - AORTIC VALVE STENOSIS [None]
  - ATRIAL FIBRILLATION [None]
  - BACTERIAL DISEASE CARRIER [None]
  - BLOOD PARATHYROID HORMONE INCREASED [None]
  - BONE METABOLISM DISORDER [None]
  - BREAST MASS [None]
  - CARDIAC DISORDER [None]
  - CARDIAC MURMUR [None]
  - DIVERTICULUM [None]
  - FEMUR FRACTURE [None]
  - FRACTURE DISPLACEMENT [None]
  - FRACTURE NONUNION [None]
  - GINGIVAL SWELLING [None]
  - HAEMORRHOIDS [None]
  - HEART RATE DECREASED [None]
  - HERPES ZOSTER [None]
  - INFECTION [None]
  - LEFT VENTRICULAR HYPERTROPHY [None]
  - LOCAL SWELLING [None]
  - LUMBAR RADICULOPATHY [None]
  - LUMBAR SPINAL STENOSIS [None]
  - MITRAL VALVE INCOMPETENCE [None]
  - MITRAL VALVE STENOSIS [None]
  - MUSCLE ATROPHY [None]
  - MUSCLE SPASMS [None]
  - OSTEONECROSIS OF JAW [None]
  - PAIN IN EXTREMITY [None]
  - PALPITATIONS [None]
  - POLYP [None]
  - PULMONARY HYPERTENSION [None]
  - SICK SINUS SYNDROME [None]
  - SINUS ARREST [None]
  - SINUS BRADYCARDIA [None]
  - SPINAL DISORDER [None]
  - SPINAL OSTEOARTHRITIS [None]
  - TRICUSPID VALVE INCOMPETENCE [None]
  - VITAMIN D DEFICIENCY [None]
